FAERS Safety Report 15320904 (Version 4)
Quarter: 2018Q3

REPORT INFORMATION
  Report Type: Spontaneous
  Country: US (occurrence: US)
  Receive Date: 20180827
  Receipt Date: 20180926
  Transmission Date: 20181010
  Serious: No
  Sender: FDA-Public Use
  Company Number: US-TEVA-2018-US-947900

PATIENT
  Sex: Female

DRUGS (2)
  1. ALPRAZOLAM. [Suspect]
     Active Substance: ALPRAZOLAM
     Indication: WITHDRAWAL SYNDROME
     Route: 065
     Dates: start: 20180806
  2. ALPRAZOLAM. [Suspect]
     Active Substance: ALPRAZOLAM
     Indication: ANXIETY

REACTIONS (5)
  - Hangover [Unknown]
  - Drug ineffective [Unknown]
  - Depression [Unknown]
  - Malaise [Unknown]
  - Irritability [Unknown]

NARRATIVE: CASE EVENT DATE: 20180806
